FAERS Safety Report 11226283 (Version 1)
Quarter: 2015Q2

REPORT INFORMATION
  Report Type: Report from Study
  Country: CN (occurrence: CN)
  Receive Date: 20150629
  Receipt Date: 20150629
  Transmission Date: 20150821
  Serious: Yes (Other)
  Sender: FDA-Public Use
  Company Number: CN-BAXALTA-2015BAX033166

PATIENT
  Weight: 25 kg

DRUGS (2)
  1. OCTOCOG ALFA; BAXJECT II [Suspect]
     Active Substance: ANTIHEMOPHILIC FACTOR, HUMAN RECOMBINANT
     Indication: HAEMOPHILIA
     Dosage: 250 IU, UNK
     Route: 065
  2. OCTOCOG ALFA; BAXJECT II [Suspect]
     Active Substance: ANTIHEMOPHILIC FACTOR, HUMAN RECOMBINANT
     Indication: PROPHYLAXIS
     Dosage: 250 IU, 3X A WEEK
     Route: 065
     Dates: start: 201506

REACTIONS (4)
  - Limb discomfort [Unknown]
  - Haemorrhage [Unknown]
  - Pain in extremity [None]
  - Haemarthrosis [Unknown]

NARRATIVE: CASE EVENT DATE: 201505
